FAERS Safety Report 7347705-0 (Version None)
Quarter: 2011Q1

REPORT INFORMATION
  Report Type: 
  Country: None (occurrence: None)
  Receive Date: 20110311
  Receipt Date: 20110303
  Transmission Date: 20110831
  Serious: Yes (Hospitalization)
  Sender: FDA-Public Use
  Company Number: B0703522A

PATIENT
  Age: 81 Year
  Sex: Female

DRUGS (3)
  1. FENOFIBRATE [Concomitant]
     Dosage: 300UNIT UNKNOWN
     Route: 065
  2. LODOZ [Concomitant]
     Dosage: 5MG UNKNOWN
     Route: 065
  3. ARIXTRA [Suspect]
     Dosage: 2.5MG PER DAY
     Route: 058
     Dates: start: 20101117, end: 20101223

REACTIONS (3)
  - ABSCESS [None]
  - HAEMATOMA INFECTION [None]
  - INFLAMMATION [None]
